FAERS Safety Report 9348181 (Version 1)
Quarter: 2013Q2

REPORT INFORMATION
  Report Type: Spontaneous
  Country: US (occurrence: None)
  Receive Date: 20130612
  Receipt Date: 20130612
  Transmission Date: 20140414
  Serious: Yes (Disabling)
  Sender: FDA-Public Use
  Company Number: None

PATIENT
  Age: 71 Year
  Sex: Male
  Weight: 75.3 kg

DRUGS (1)
  1. ROPIVACAINE [Suspect]
     Indication: PROCEDURAL PAIN
     Route: 008
     Dates: start: 20130528, end: 20130531

REACTIONS (3)
  - Hypoaesthesia [None]
  - Balance disorder [None]
  - Sensory loss [None]
